FAERS Safety Report 13626017 (Version 1)
Quarter: 2017Q2

REPORT INFORMATION
  Report Type: Spontaneous
  Country: US (occurrence: US)
  Receive Date: 20170531
  Receipt Date: 20170531
  Transmission Date: 20170830
  Serious: Yes (Other)
  Sender: FDA-Public Use
  Company Number: US-ASTELLAS-1158235

PATIENT
  Sex: Female
  Weight: 58.9 kg

DRUGS (18)
  1. COMBIVENT [Concomitant]
     Active Substance: ALBUTEROL SULFATE\IPRATROPIUM BROMIDE
     Route: 065
  2. RANITIDINE. [Concomitant]
     Active Substance: RANITIDINE
     Route: 065
  3. DOCUSATE [Concomitant]
     Active Substance: DOCUSATE
     Route: 065
     Dates: start: 20120827
  4. LEVOTHYROXINE. [Concomitant]
     Active Substance: LEVOTHYROXINE
     Route: 065
     Dates: start: 20120827
  5. SENNA [Concomitant]
     Active Substance: SENNA LEAF\SENNOSIDES\SENNOSIDES A AND B
     Route: 065
     Dates: start: 20120827
  6. MEGACE [Concomitant]
     Active Substance: MEGESTROL ACETATE
     Dosage: 125MG/5ML 1 TSP DAILY
     Route: 065
     Dates: start: 20120827
  7. HYDROMORPHONE [Concomitant]
     Active Substance: HYDROMORPHONE
     Route: 065
     Dates: start: 20120827, end: 20121003
  8. FOLIC ACID. [Concomitant]
     Active Substance: FOLIC ACID
     Route: 065
     Dates: start: 20120827, end: 20121003
  9. POTASSIUM CHLORIDE. [Concomitant]
     Active Substance: POTASSIUM CHLORIDE
     Route: 065
     Dates: start: 20120827
  10. TARCEVA [Suspect]
     Active Substance: ERLOTINIB HYDROCHLORIDE
     Indication: LUNG NEOPLASM MALIGNANT
     Route: 048
     Dates: start: 20121003
  11. AMLODIPINE [Concomitant]
     Active Substance: AMLODIPINE BESYLATE
     Route: 065
     Dates: start: 20120827
  12. ADVAIR HFA [Concomitant]
     Active Substance: FLUTICASONE PROPIONATE\SALMETEROL XINAFOATE
     Dosage: 250/50 MG
     Route: 065
     Dates: start: 20120827
  13. LORAZEPAM. [Concomitant]
     Active Substance: LORAZEPAM
     Route: 065
     Dates: start: 20120827
  14. CARAFATE [Concomitant]
     Active Substance: SUCRALFATE
     Route: 065
     Dates: start: 20120827, end: 20121121
  15. HYDROMORPHONE [Concomitant]
     Active Substance: HYDROMORPHONE
     Route: 065
     Dates: start: 20121003, end: 20121121
  16. COMBIVENT [Concomitant]
     Active Substance: ALBUTEROL SULFATE\IPRATROPIUM BROMIDE
     Route: 065
     Dates: start: 20120827
  17. MAGNESIUM OXIDE. [Concomitant]
     Active Substance: MAGNESIUM OXIDE
     Route: 065
     Dates: start: 20120827
  18. DEXAMETHASONE. [Concomitant]
     Active Substance: DEXAMETHASONE
     Route: 065
     Dates: start: 20120827, end: 20121003

REACTIONS (1)
  - Nausea [Recovering/Resolving]
